FAERS Safety Report 15285353 (Version 10)
Quarter: 2020Q1

REPORT INFORMATION
  Report Type: Spontaneous
  Country: CA (occurrence: CA)
  Receive Date: 20180816
  Receipt Date: 20200318
  Transmission Date: 20200409
  Serious: Yes (Hospitalization, Other)
  Sender: FDA-Public Use
  Company Number: CA-CELLTRION INC.-2018CA021824

PATIENT

DRUGS (23)
  1. INFLECTRA [Suspect]
     Active Substance: INFLIXIMAB-DYYB
     Dosage: 300 MG, EVERY 2,6, AND EVERY 8 WEEKS
     Route: 042
     Dates: start: 20180727
  2. INFLECTRA [Suspect]
     Active Substance: INFLIXIMAB-DYYB
     Dosage: 5 MG/KG EVERY 8 WEEKS
     Route: 042
     Dates: start: 20200103
  3. INFLECTRA [Suspect]
     Active Substance: INFLIXIMAB-DYYB
     Dosage: 300 MG, (EVERY2,6, AND EVERY 8 WEEKS)
     Route: 042
     Dates: start: 20180710, end: 20190529
  4. PREDNISONE. [Concomitant]
     Active Substance: PREDNISONE
     Dosage: UNK
     Dates: start: 201709
  5. ASACOL [Concomitant]
     Active Substance: MESALAMINE
     Dosage: 8 TABLETS FOR 7 DAYS, THEN 7 TABLETS FOR 7 DAYS ETC. (TAPERING DOSE),
     Route: 048
     Dates: start: 201808
  6. INFLECTRA [Suspect]
     Active Substance: INFLIXIMAB-DYYB
     Dosage: 5 MG/KG EVERY 8 WEEKS
     Route: 042
     Dates: start: 20200305
  7. INFLECTRA [Suspect]
     Active Substance: INFLIXIMAB-DYYB
     Dosage: 300 MG, EVERY 2,6, AND EVERY 8 WEEKS
     Route: 042
  8. INFLECTRA [Suspect]
     Active Substance: INFLIXIMAB-DYYB
     Dosage: 300 MG, EVERY 2,6, AND EVERY 8 WEEKS
     Route: 042
     Dates: start: 20181212
  9. INFLECTRA [Suspect]
     Active Substance: INFLIXIMAB-DYYB
     Dosage: 300 MG,(EVERY 2,6, AND EVERY 8 WEEKS)
     Route: 042
     Dates: start: 20190529
  10. ASACOL [Concomitant]
     Active Substance: MESALAMINE
     Dosage: UNK
     Route: 065
  11. DIPHENHYDRAMINE. [Concomitant]
     Active Substance: DIPHENHYDRAMINE
     Dosage: 25 MG, UNK
     Route: 042
     Dates: start: 20200305, end: 20200305
  12. NORVASC [Concomitant]
     Active Substance: AMLODIPINE BESYLATE
     Dosage: 5 MG, DAILY
     Dates: start: 20190131
  13. INFLECTRA [Suspect]
     Active Substance: INFLIXIMAB-DYYB
     Indication: COLITIS ULCERATIVE
     Dosage: 5 MG/KG, EVERY 0, 2, 6 WEEKS THEN EVERY 8 WEEKS
     Route: 042
     Dates: start: 20180710
  14. INFLECTRA [Suspect]
     Active Substance: INFLIXIMAB-DYYB
     Dosage: 300 MG,(EVERY 2,6, AND EVERY 8 WEEKS)
     Route: 042
     Dates: start: 20190403
  15. CORTISONE [Concomitant]
     Active Substance: CORTISONE
     Dosage: 8 TABS FOR 7 DAYS THEN 7 TABLETS FOR 7 DAYS ETC. (TAPERING DOSE) UNTIL 1 TABLET PER DAY FOR 7 DAYS
     Route: 048
     Dates: start: 201808
  16. INFLECTRA [Suspect]
     Active Substance: INFLIXIMAB-DYYB
     Dosage: 300 MG, EVERY 2,6, AND EVERY 8 WEEKS
     Route: 042
     Dates: start: 20180823
  17. INFLECTRA [Suspect]
     Active Substance: INFLIXIMAB-DYYB
     Dosage: 300 MG, EVERY 2,6, AND EVERY 8 WEEKS
     Route: 042
     Dates: start: 20181018
  18. INFLECTRA [Suspect]
     Active Substance: INFLIXIMAB-DYYB
     Dosage: 300 MG, EVERY 2,6, AND EVERY 8 WEEKS
     Route: 042
     Dates: start: 20190206
  19. SALOFALK  [MESALAZINE] [Concomitant]
     Active Substance: MESALAMINE
     Indication: ENEMA ADMINISTRATION
     Dosage: UNK, 1X/DAY (OVERNIGHT FOR 3 MONTHS)
     Route: 054
     Dates: start: 201808
  20. CORTISONE [Concomitant]
     Active Substance: CORTISONE
     Dosage: UNK
     Route: 042
     Dates: start: 20180626
  21. HYDROCORTISONE. [Concomitant]
     Active Substance: HYDROCORTISONE
     Dosage: 100 MG, UNK
     Route: 042
     Dates: start: 20200305, end: 20200305
  22. INFLECTRA [Suspect]
     Active Substance: INFLIXIMAB-DYYB
     Dosage: 5 MG/KG EVERY 8 WEEKS
     Route: 042
     Dates: start: 20190724
  23. VITAMIN B12 [Concomitant]
     Active Substance: CYANOCOBALAMIN
     Dosage: UNK, EVERY TUESDAYS
     Dates: start: 201807

REACTIONS (9)
  - Muscular weakness [Not Recovered/Not Resolved]
  - Alopecia [Unknown]
  - Off label use [Unknown]
  - Condition aggravated [Recovering/Resolving]
  - Hypertension [Unknown]
  - Rash macular [Not Recovered/Not Resolved]
  - Blood pressure fluctuation [Not Recovered/Not Resolved]
  - Headache [Unknown]
  - Anxiety [Unknown]

NARRATIVE: CASE EVENT DATE: 20180712
